FAERS Safety Report 5600182-X (Version None)
Quarter: 2008Q1

REPORT INFORMATION
  Report Type: 
  Country: None (occurrence: None)
  Receive Date: 20080117
  Receipt Date: 20080117
  Transmission Date: 20080703
  Serious: Yes (Life-Threatening, Hospitalization)
  Sender: FDA-Public Use
  Company Number: None

PATIENT
  Age: 45 Year
  Sex: Male

DRUGS (1)
  1. LORAZEPAM [Suspect]
     Indication: AGITATION
     Dosage: 1MG UD IV
     Route: 042
     Dates: start: 20071209, end: 20071209

REACTIONS (6)
  - ACIDOSIS [None]
  - CONFUSIONAL STATE [None]
  - HYPOTENSION [None]
  - HYPOTHERMIA [None]
  - RESPIRATORY FAILURE [None]
  - SEPSIS [None]
